FAERS Safety Report 23575534 (Version 2)
Quarter: 2024Q2

REPORT INFORMATION
  Report Type: Other
  Country: DE (occurrence: None)
  Receive Date: 20240228
  Receipt Date: 20240611
  Transmission Date: 20240716
  Serious: Yes (Hospitalization)
  Sender: FDA-Public Use
  Company Number: DE-ROCHE-3462492

PATIENT
  Age: 61 Year
  Sex: Female
  Weight: 65 kg

DRUGS (26)
  1. OCREVUS [Suspect]
     Active Substance: OCRELIZUMAB
     Indication: Relapsing multiple sclerosis
     Route: 042
     Dates: start: 20181120, end: 20181205
  2. OCREVUS [Suspect]
     Active Substance: OCRELIZUMAB
     Dosage: MOST RECENT DOSE RECEIVED ON 02/JUN/2022
     Route: 042
     Dates: start: 20190522
  3. PREDNISOLONE [Concomitant]
     Active Substance: PREDNISOLONE
     Route: 048
     Dates: start: 20181205
  4. PREDNISOLONE [Concomitant]
     Active Substance: PREDNISOLONE
     Route: 048
     Dates: start: 20181120, end: 20181120
  5. TILIDINE [Concomitant]
     Active Substance: TILIDINE
     Indication: Back pain
     Route: 048
     Dates: start: 20220601
  6. EBASTINE [Concomitant]
     Active Substance: EBASTINE
     Route: 048
     Dates: start: 20181119, end: 20181121
  7. EBASTINE [Concomitant]
     Active Substance: EBASTINE
     Route: 048
     Dates: start: 20181204
  8. PFIZER-BIONTECH COVID-19 VACCINE [Concomitant]
     Active Substance: TOZINAMERAN
     Indication: COVID-19 prophylaxis
     Route: 030
     Dates: start: 20210722, end: 20210722
  9. PFIZER-BIONTECH COVID-19 VACCINE [Concomitant]
     Active Substance: TOZINAMERAN
     Route: 030
     Dates: start: 20210602, end: 20210602
  10. PFIZER-BIONTECH COVID-19 VACCINE [Concomitant]
     Active Substance: TOZINAMERAN
     Route: 030
     Dates: start: 20220119, end: 20220119
  11. METAMIZOLE [Concomitant]
     Active Substance: METAMIZOLE
     Dosage: DEFINITION OF THE INTERVAL: AS REQUIRED
     Route: 048
     Dates: start: 202006
  12. LEVOTHYROXINE SODIUM [Concomitant]
     Active Substance: LEVOTHYROXINE SODIUM
     Indication: Hypothyroidism
     Route: 048
  13. ASPIRIN [Concomitant]
     Active Substance: ASPIRIN
     Indication: Pain
     Route: 048
  14. GABAPENTIN [Concomitant]
     Active Substance: GABAPENTIN
     Indication: Pain in extremity
     Dates: start: 20220209
  15. RAMIPRIL [Concomitant]
     Active Substance: RAMIPRIL
     Indication: Hypertension
     Route: 048
  16. METHIONINE [Concomitant]
     Active Substance: METHIONINE
     Indication: Urinary tract infection
     Route: 048
     Dates: start: 20220601
  17. RANITIDINE HYDROCHLORIDE [Concomitant]
     Active Substance: RANITIDINE HYDROCHLORIDE
     Route: 048
     Dates: start: 20181204, end: 20181206
  18. RANITIDINE HYDROCHLORIDE [Concomitant]
     Active Substance: RANITIDINE HYDROCHLORIDE
     Route: 048
     Dates: start: 20181119, end: 20181121
  19. FOSFOMYCIN TROMETHAMINE [Concomitant]
     Active Substance: FOSFOMYCIN TROMETHAMINE
     Indication: Urinary tract infection
     Route: 048
     Dates: start: 20201013, end: 20201013
  20. LIPOCOL (GERMANY) [Concomitant]
     Route: 048
     Dates: start: 20181015
  21. CHOLECALCIFEROL [Concomitant]
     Active Substance: CHOLECALCIFEROL
     Indication: Vitamin D deficiency
     Route: 048
     Dates: start: 20170426
  22. NITROFURANTOIN [Concomitant]
     Active Substance: NITROFURANTOIN
     Indication: Urinary tract infection
     Route: 048
     Dates: start: 20220602
  23. UVALYSAT [Concomitant]
     Indication: Urinary tract infection
     Route: 048
     Dates: start: 202010
  24. TIZANIDINE [Concomitant]
     Active Substance: TIZANIDINE
     Indication: Pain in extremity
     Route: 048
     Dates: start: 202201, end: 202202
  25. NOVALGIN (METAMIZOLE SODIUM) [Concomitant]
     Active Substance: METAMIZOLE SODIUM
     Indication: Pain
     Dosage: DEFINITION OF THE INTERVAL: AS REQUIRED
     Route: 048
  26. LYRICA [Concomitant]
     Active Substance: PREGABALIN
     Indication: Dysaesthesia
     Route: 048
     Dates: start: 20180907

REACTIONS (4)
  - Faecaloma [Recovered/Resolved]
  - Abdominal pain lower [Recovered/Resolved]
  - Gallbladder disorder [Not Recovered/Not Resolved]
  - Diarrhoea [Recovered/Resolved]

NARRATIVE: CASE EVENT DATE: 20230726
